FAERS Safety Report 4686246-6 (Version None)
Quarter: 2005Q2

REPORT INFORMATION
  Report Type: 
  Country: None (occurrence: None)
  Receive Date: 20050609
  Receipt Date: 20050421
  Transmission Date: 20051028
  Serious: Yes (Disabling)
  Sender: FDA-Public Use
  Company Number: 2005JP000864

PATIENT
  Age: 27 Year
  Sex: Female

DRUGS (1)
  1. CEFAZOLIN [Suspect]
     Indication: TONSILLITIS
     Dosage: 1G PER DAY
     Route: 030
     Dates: start: 20050323

REACTIONS (6)
  - DIFFICULTY IN WALKING [None]
  - FEELING ABNORMAL [None]
  - INJECTION SITE PAIN [None]
  - PAIN [None]
  - PYREXIA [None]
  - SCIATIC NERVE INJURY [None]
